FAERS Safety Report 7880429-X (Version None)
Quarter: 2011Q4

REPORT INFORMATION
  Report Type: 
  Country: None (occurrence: None)
  Receive Date: 20111101
  Receipt Date: 20111025
  Transmission Date: 20120403
  Serious: Yes (Death, Hospitalization)
  Sender: FDA-Public Use
  Company Number: PHHY2009CN57622

PATIENT
  Age: 57 Year
  Sex: Male

DRUGS (4)
  1. GLEEVEC [Suspect]
     Indication: GASTROINTESTINAL STROMAL TUMOUR
     Dosage: 200 MG, QD
     Route: 048
     Dates: start: 20080602
  2. GLEEVEC [Suspect]
     Dosage: 400 MG PER DAY
     Route: 048
  3. HYDROXY CAMPTOTHECIN [Concomitant]
     Dosage: 10 MG, UNK
  4. FLUOROURACIL [Concomitant]
     Dosage: 1 G, UNK

REACTIONS (3)
  - GASTROINTESTINAL STROMAL TUMOUR [None]
  - NEOPLASM MALIGNANT [None]
  - MULTI-ORGAN FAILURE [None]
